FAERS Safety Report 10222894 (Version 1)
Quarter: 2014Q2

REPORT INFORMATION
  Report Type: Spontaneous
  Country: US (occurrence: US)
  Receive Date: 20140607
  Receipt Date: 20140607
  Transmission Date: 20141212
  Serious: No
  Sender: FDA-Public Use
  Company Number: US-009507513-1406USA003315

PATIENT
  Sex: Male

DRUGS (1)
  1. INTRONA [Suspect]
     Indication: CONJUNCTIVAL NEOPLASM
     Dosage: DOSE/FREQUENCY: ONE DROP / FOUR TIMES A DAY
     Route: 047
     Dates: start: 20140408

REACTIONS (2)
  - Ocular hyperaemia [Unknown]
  - Eye irritation [Unknown]
